FAERS Safety Report 9303380 (Version 1)
Quarter: 2012Q4

REPORT INFORMATION
  Report Type: Spontaneous
  Country: GB (occurrence: None)
  Receive Date: 20121205
  Receipt Date: 20121205
  Transmission Date: 20130627
  Serious: Yes (Hospitalization)
  Sender: FDA-Public Use
  Company Number: 2012-19526

PATIENT
  Age: 5 Month
  Sex: Female

DRUGS (2)
  1. CETIRIZINE [Suspect]
     Indication: DRUG USE FOR UNKNOWN INDICATION
     Dosage: OF 75MG/5M suspension taken 3x daily,  oral solution
     Route: 048
     Dates: start: 20120417, end: 20120422
  2. RANITIDINE (RANITIDINE) [Suspect]
     Indication: DRUG USE FOR UNKNOWN INDICATION
     Dosage: 1ml (75mg/5rml) tid

REACTIONS (6)
  - Gastric ulcer [None]
  - Decreased appetite [None]
  - Crying [None]
  - Screaming [None]
  - Drug dispensing error [None]
  - Wrong drug administered [None]
